FAERS Safety Report 9005877 (Version 3)
Quarter: 2013Q4

REPORT INFORMATION
  Report Type: Spontaneous
  Country: US (occurrence: US)
  Receive Date: 20130109
  Receipt Date: 20131223
  Transmission Date: 20140711
  Serious: No
  Sender: FDA-Public Use
  Company Number: US-ENDO PHARMACEUTICALS INC.-OPCR20122142

PATIENT
  Age: 46 Year
  Sex: Male

DRUGS (1)
  1. OPANA ER 40MG [Suspect]
     Indication: PAIN
     Route: 048
     Dates: start: 2012

REACTIONS (3)
  - Coronary artery disease [Not Recovered/Not Resolved]
  - Cardiac disorder [Unknown]
  - Chest pain [Unknown]
